FAERS Safety Report 20819096 (Version 1)
Quarter: 2022Q2

REPORT INFORMATION
  Report Type: Spontaneous
  Country: US (occurrence: US)
  Receive Date: 20220512
  Receipt Date: 20220512
  Transmission Date: 20220721
  Serious: No
  Sender: FDA-Public Use
  Company Number: US-drreddys-SPO/USA/22/0149653

PATIENT
  Age: 33 Year
  Sex: Male

DRUGS (2)
  1. OLANZAPINE [Suspect]
     Active Substance: OLANZAPINE
     Indication: Psychotic disorder
     Route: 065
  2. BUPRENORPHINE, NALOXANE [Concomitant]
     Indication: Drug use disorder

REACTIONS (3)
  - Akathisia [Unknown]
  - Sedation [Unknown]
  - Weight increased [Recovering/Resolving]
